FAERS Safety Report 8859313 (Version 1)
Quarter: 2012Q4

REPORT INFORMATION
  Report Type: 
  Country: US (occurrence: US)
  Receive Date: 20121024
  Receipt Date: 20121024
  Transmission Date: 20130627
  Serious: No
  Sender: FDA-Public Use
  Company Number: US-ASTRAZENECA-2012SE26996

PATIENT
  Age: 60 Year
  Sex: Male

DRUGS (3)
  1. TOPROL XL [Suspect]
     Route: 048
  2. SEROQUEL [Suspect]
     Route: 048
  3. CRESTOR [Suspect]
     Route: 048

REACTIONS (6)
  - Depression [Unknown]
  - Anxiety [Unknown]
  - Hypertension [Unknown]
  - Blood cholesterol increased [Unknown]
  - Neuropsychiatric syndrome [Unknown]
  - Cerebrovascular insufficiency [Unknown]
